FAERS Safety Report 23331142 (Version 2)
Quarter: 2024Q1

REPORT INFORMATION
  Report Type: Spontaneous
  Country: CA (occurrence: CA)
  Receive Date: 20231222
  Receipt Date: 20240103
  Transmission Date: 20240410
  Serious: Yes (Other)
  Sender: FDA-Public Use
  Company Number: CA-MYLANLABS-2023M1132317

PATIENT
  Age: 54 Year
  Sex: Female
  Weight: 55 kg

DRUGS (10)
  1. MAVIK [Suspect]
     Active Substance: TRANDOLAPRIL
     Indication: Hypertension
     Dosage: UNK
     Route: 065
  2. ACTEMRA [Suspect]
     Active Substance: TOCILIZUMAB
     Indication: Rheumatoid arthritis
     Dosage: 465 MILLIGRAM (1 EVERY 4 WEEKS)
     Route: 042
  3. ACTEMRA [Suspect]
     Active Substance: TOCILIZUMAB
     Dosage: 560 MILLIGRAM (1 EVERY 4 WEEKS)
     Route: 042
  4. PREDNISONE [Suspect]
     Active Substance: PREDNISONE
     Indication: Product used for unknown indication
     Dosage: UNK
     Route: 065
  5. VALSARTAN [Suspect]
     Active Substance: VALSARTAN
     Indication: Hypertension
     Dosage: 80 MILLIGRAM
     Route: 048
  6. HYDROXYCHLOROQUINE [Concomitant]
     Active Substance: HYDROXYCHLOROQUINE
     Dosage: 200 MILLIGRAM (2 EVERY 1 DAY)
     Route: 065
  7. IBUPROFEN [Concomitant]
     Active Substance: IBUPROFEN
     Dosage: UNK
     Route: 065
  8. RANITIDINE [Concomitant]
     Active Substance: RANITIDINE
     Dosage: 150 MILLIGRAM (2 EVERY 1 DAY)
     Route: 065
  9. SULFASALAZINE [Concomitant]
     Active Substance: SULFASALAZINE
     Dosage: 500 MILLIGRAM (2 EVERY 1 DAY)
     Route: 065
  10. ARAVA [Concomitant]
     Active Substance: LEFLUNOMIDE
     Dosage: 20 MILLIGRAM
     Route: 065

REACTIONS (33)
  - Rheumatoid arthritis [Unknown]
  - Contusion [Unknown]
  - Therapeutic product effect decreased [Unknown]
  - Gait inability [Unknown]
  - Joint swelling [Unknown]
  - Illness [Unknown]
  - Limb injury [Unknown]
  - Inflammation [Unknown]
  - Infusion related reaction [Unknown]
  - Oxygen saturation decreased [Unknown]
  - Pain [Unknown]
  - Weight decreased [Unknown]
  - Weight increased [Unknown]
  - Musculoskeletal stiffness [Unknown]
  - Post procedural haemorrhage [Unknown]
  - Stress [Unknown]
  - Blood pressure diastolic abnormal [Unknown]
  - Blood pressure fluctuation [Unknown]
  - Blood pressure increased [Unknown]
  - Blood pressure systolic increased [Unknown]
  - Body temperature increased [Unknown]
  - Chest pain [Unknown]
  - Arthralgia [Unknown]
  - Cough [Unknown]
  - Heart rate increased [Unknown]
  - Hypertension [Unknown]
  - Hypotension [Unknown]
  - Nasopharyngitis [Unknown]
  - Pain in extremity [Unknown]
  - Paraesthesia [Unknown]
  - Peripheral swelling [Unknown]
  - Vomiting [Unknown]
  - Dizziness [Unknown]
